FAERS Safety Report 9029391 (Version 1)
Quarter: 2013Q1

REPORT INFORMATION
  Report Type: Spontaneous
  Country: US (occurrence: US)
  Receive Date: 20130125
  Receipt Date: 20130125
  Transmission Date: 20140127
  Serious: Yes (Hospitalization)
  Sender: FDA-Public Use
  Company Number: PHEH2012US004839

PATIENT
  Age: 18 Year
  Sex: Male
  Weight: 100 kg

DRUGS (3)
  1. AFINITOR [Suspect]
     Indication: TUBEROUS SCLEROSIS
     Dosage: 10 MG, DAILY
     Route: 048
     Dates: start: 20111229, end: 20121220
  2. AFINITOR [Suspect]
     Indication: BRAIN NEOPLASM BENIGN
  3. LOBELIA INFLATA [Concomitant]

REACTIONS (20)
  - Panniculitis [Recovered/Resolved]
  - Erythema [Recovered/Resolved]
  - Skin mass [Recovered/Resolved]
  - Skin warm [Recovered/Resolved]
  - Skin induration [Recovered/Resolved]
  - Infection [Recovered/Resolved]
  - Streptococcal infection [Not Recovered/Not Resolved]
  - Blister [Unknown]
  - Mood altered [Unknown]
  - Wound [Unknown]
  - Ocular hyperaemia [Unknown]
  - Purulent discharge [Unknown]
  - Seasonal allergy [Unknown]
  - Abdominal pain upper [Unknown]
  - Diarrhoea [Unknown]
  - Cough [Unknown]
  - Nausea [Recovered/Resolved]
  - Vomiting [Recovered/Resolved]
  - Drug level decreased [Unknown]
  - Rash generalised [Not Recovered/Not Resolved]
